FAERS Safety Report 9788401 (Version 1)
Quarter: 2013Q4

REPORT INFORMATION
  Report Type: Spontaneous
  Country: JP (occurrence: JP)
  Receive Date: 20131230
  Receipt Date: 20131230
  Transmission Date: 20140711
  Serious: Yes (Hospitalization)
  Sender: FDA-Public Use
  Company Number: JP-TAKEDA-2013TEU003765

PATIENT
  Age: 77 Year
  Sex: Male

DRUGS (4)
  1. TACHOSIL [Suspect]
     Indication: PROPHYLAXIS
     Dosage: 1SHEET /1DAY
     Dates: start: 20130411, end: 20130411
  2. ULTIVA [Concomitant]
     Indication: LUNG NEOPLASM MALIGNANT
     Dosage: 0.4 MG, QD
     Dates: start: 20130411, end: 20130411
  3. FLUMARIN                           /00780601/ [Concomitant]
     Indication: INFECTION PROPHYLAXIS
     Dosage: 1 G, BID
     Dates: start: 20130411, end: 20130411
  4. MARCAIN                            /00044301/ [Concomitant]
     Indication: ANALGESIC THERAPY
     Dosage: 200 ML X 8/1 DAY
     Dates: start: 20130411, end: 20130418

REACTIONS (1)
  - Pulmonary fistula [Recovering/Resolving]
